FAERS Safety Report 4435873-X (Version None)
Quarter: 2004Q3

REPORT INFORMATION
  Report Type: 
  Country: None (occurrence: None)
  Receive Date: 20040726
  Receipt Date: 20040308
  Transmission Date: 20050211
  Serious: No
  Sender: FDA-Public Use
  Company Number: USA040360682

PATIENT
  Age: 68 Year
  Sex: Female
  Weight: 49 kg

DRUGS (2)
  1. FORTEO [Suspect]
     Indication: PELVIC FRACTURE
     Dosage: 20 UG 1 DAY
     Dates: start: 20031101
  2. FORTEO [Suspect]
     Indication: RIB FRACTURE
     Dosage: 20 UG 1 DAY
     Dates: start: 20031101

REACTIONS (2)
  - ABDOMINAL PAIN UPPER [None]
  - FEELING ABNORMAL [None]
